FAERS Safety Report 6661298-2 (Version None)
Quarter: 2010Q1

REPORT INFORMATION
  Report Type: 
  Country: None (occurrence: None)
  Receive Date: 20100331
  Receipt Date: 20100323
  Transmission Date: 20100710
  Serious: Yes (Death, Hospitalization)
  Sender: FDA-Public Use
  Company Number: US-BAXTER-2010BH006361

PATIENT
  Age: 64 Year
  Sex: Male

DRUGS (2)
  1. DIANEAL [Suspect]
     Indication: PERITONEAL DIALYSIS
     Route: 033
  2. DIANEAL [Suspect]
     Indication: PERITONEAL DIALYSIS
     Route: 033

REACTIONS (5)
  - ABDOMINAL DISTENSION [None]
  - CARDIAC ARREST [None]
  - DEATH [None]
  - GASTROINTESTINAL HAEMORRHAGE [None]
  - PERITONITIS BACTERIAL [None]
